FAERS Safety Report 16183910 (Version 1)
Quarter: 2019Q2

REPORT INFORMATION
  Report Type: Spontaneous
  Country: NL (occurrence: NL)
  Receive Date: 20190411
  Receipt Date: 20190411
  Transmission Date: 20190711
  Serious: Yes (Hospitalization)
  Sender: FDA-Public Use
  Company Number: NL-ASTRAZENECA-2019SE52016

PATIENT
  Age: 68 Year
  Sex: Female
  Weight: 85 kg

DRUGS (4)
  1. DICLOFENAC [Suspect]
     Active Substance: DICLOFENAC
     Indication: OSTEOARTHRITIS
     Route: 048
     Dates: start: 201808
  2. DICLOFENAC [Suspect]
     Active Substance: DICLOFENAC
     Indication: RHEUMATOID ARTHRITIS
     Route: 048
     Dates: start: 201808
  3. ATENOLOL. [Concomitant]
     Active Substance: ATENOLOL
  4. ANTACID OMEPRAZOL HTP (OMEPRAZOL) [Suspect]
     Active Substance: OMEPRAZOLE SODIUM
     Indication: PROPHYLAXIS AGAINST GASTROINTESTINAL ULCER
     Route: 048
     Dates: start: 201811, end: 201903

REACTIONS (1)
  - Renal failure [Recovering/Resolving]

NARRATIVE: CASE EVENT DATE: 201902
